FAERS Safety Report 10158561 (Version 2)
Quarter: 2014Q2

REPORT INFORMATION
  Report Type: Spontaneous
  Country: JP (occurrence: JP)
  Receive Date: 20140507
  Receipt Date: 20140610
  Transmission Date: 20141212
  Serious: Yes (Death)
  Sender: FDA-Public Use
  Company Number: JP-009507513-1405JPN001823

PATIENT
  Age: 8 Year
  Sex: Male

DRUGS (2)
  1. TEMOZOLOMIDE [Suspect]
     Indication: GLIOBLASTOMA
     Dosage: DOSAGE TEXT,75 MG/M2, UNK
     Route: 048
  2. TEMOZOLOMIDE [Suspect]
     Dosage: ADJUVANT TMZ 150-200MG/M2 ON FIVE CONSECUTIVE DAYS EVERY 28 DAYS
     Route: 048

REACTIONS (2)
  - General physical health deterioration [Fatal]
  - Drug ineffective [Fatal]
